FAERS Safety Report 19384078 (Version 2)
Quarter: 2021Q4

REPORT INFORMATION
  Report Type: Spontaneous
  Country: GB (occurrence: GB)
  Receive Date: 20210608
  Receipt Date: 20211105
  Transmission Date: 20220303
  Serious: Yes (Hospitalization, Other)
  Sender: FDA-Public Use
  Company Number: GB-AMGEN-GBRSP2021074075

PATIENT
  Sex: Female

DRUGS (1)
  1. ADALIMUMAB [Suspect]
     Active Substance: ADALIMUMAB
     Indication: Rheumatoid arthritis
     Dosage: 40 MILLIGRAM, Q2WK
     Route: 058
     Dates: start: 201904

REACTIONS (2)
  - Lower respiratory tract infection [Unknown]
  - Asthma [Unknown]
